FAERS Safety Report 8556025-8 (Version None)
Quarter: 2012Q3

REPORT INFORMATION
  Report Type: 
  Country: None (occurrence: None)
  Receive Date: 20120719
  Receipt Date: 20120709
  Transmission Date: 20120928
  Serious: Yes (Other)
  Sender: FDA-Public Use
  Company Number: ADR-2012-01297

PATIENT
  Sex: Male

DRUGS (1)
  1. LIORESAL [Suspect]
     Dosage: 364 MCG/DAY

REACTIONS (3)
  - IMPLANT SITE ERYTHEMA [None]
  - IMPLANT SITE SWELLING [None]
  - IMPLANT SITE DISCHARGE [None]
